FAERS Safety Report 17399381 (Version 1)
Quarter: 2020Q1

REPORT INFORMATION
  Report Type: Spontaneous
  Country: GB (occurrence: GB)
  Receive Date: 20200211
  Receipt Date: 20200211
  Transmission Date: 20200409
  Serious: Yes (Other)
  Sender: FDA-Public Use
  Company Number: GB-ADVANZ PHARMA-202002000633

PATIENT

DRUGS (11)
  1. PREDNISOLONE. [Suspect]
     Active Substance: PREDNISOLONE
     Indication: LOWER RESPIRATORY TRACT INFECTION
     Dosage: 30 MG, QD
     Route: 048
     Dates: start: 20191224, end: 20191229
  2. GENERICS UK CO-AMOXICLAV [Suspect]
     Active Substance: AMOXICILLIN\CLAVULANIC ACID
     Indication: LOWER RESPIRATORY TRACT INFECTION
     Dosage: 1875 MG, QD
     Route: 048
     Dates: start: 20191224, end: 20200108
  3. QUININE [Concomitant]
     Active Substance: QUININE
  4. CETIRIZINE [Concomitant]
     Active Substance: CETIRIZINE HYDROCHLORIDE
  5. LIOTHYRONINE [Concomitant]
     Active Substance: LIOTHYRONINE
  6. OMALIZUMAB. [Suspect]
     Active Substance: OMALIZUMAB
     Indication: CHRONIC SPONTANEOUS URTICARIA
     Dosage: FOR 6 DOSES
     Route: 051
     Dates: start: 20191029
  7. DOXYCYCLINE. [Concomitant]
     Active Substance: DOXYCYCLINE
  8. CITALOPRAM [Concomitant]
     Active Substance: CITALOPRAM HYDROBROMIDE
  9. FEXOFENADINE [Concomitant]
     Active Substance: FEXOFENADINE HYDROCHLORIDE
  10. LEVOTHYROXINE. [Concomitant]
     Active Substance: LEVOTHYROXINE
  11. MIRTAZAPINE. [Concomitant]
     Active Substance: MIRTAZAPINE

REACTIONS (2)
  - Abortion spontaneous [Unknown]
  - Maternal exposure during pregnancy [Unknown]

NARRATIVE: CASE EVENT DATE: 20200108
